FAERS Safety Report 7163755-1 (Version None)
Quarter: 2010Q4

REPORT INFORMATION
  Report Type: 
  Country: None (occurrence: None)
  Receive Date: 20101202
  Receipt Date: 20101117
  Transmission Date: 20110411
  Serious: Yes (Hospitalization)
  Sender: FDA-Public Use
  Company Number: 022258

PATIENT
  Sex: Female
  Weight: 62.1 kg

DRUGS (10)
  1. CIMZIA [Suspect]
     Indication: CROHN'S DISEASE
     Dosage: 400 MG 1X/MONTH SUBCUTANEOUS
     Route: 058
     Dates: start: 20100809
  2. NORVASC [Concomitant]
  3. CLONIDINE [Concomitant]
  4. METOPROLOL [Concomitant]
  5. PREDNISONE [Concomitant]
  6. POTASSIUM [Concomitant]
  7. MAGNESIUM [Concomitant]
  8. COUMADIN [Concomitant]
  9. LOVENOX [Concomitant]
  10. FENTANYL-100 [Concomitant]

REACTIONS (7)
  - ACTIVATED PARTIAL THROMBOPLASTIN TIME PROLONGED [None]
  - CROHN'S DISEASE [None]
  - GASTROINTESTINAL HAEMORRHAGE [None]
  - GASTROINTESTINAL PAIN [None]
  - NAUSEA [None]
  - POST PROCEDURAL COMPLICATION [None]
  - SMALL INTESTINAL STENOSIS [None]
